FAERS Safety Report 10007173 (Version 1)
Quarter: 2014Q1

REPORT INFORMATION
  Report Type: Spontaneous
  Country: US (occurrence: None)
  Receive Date: 20140311
  Receipt Date: 20140311
  Transmission Date: 20141002
  Serious: Yes (Other)
  Sender: FDA-Public Use
  Company Number: 2014RD000015

PATIENT
  Age: 83 Year
  Sex: Male

DRUGS (1)
  1. ALBUTEROL SULFATE [Suspect]
     Indication: ASTHMA
     Route: 055
     Dates: start: 20131015, end: 20131020

REACTIONS (6)
  - Accidental exposure to product [None]
  - Eye irritation [None]
  - Burning sensation [None]
  - Eye pain [None]
  - Ocular hyperaemia [None]
  - Visual acuity reduced [None]
